FAERS Safety Report 20326800 (Version 1)
Quarter: 2022Q1

REPORT INFORMATION
  Report Type: Spontaneous
  Country: US (occurrence: US)
  Receive Date: 20220112
  Receipt Date: 20220112
  Transmission Date: 20220423
  Serious: No
  Sender: FDA-Public Use
  Company Number: US-BAXTER-2022BAX000475

PATIENT

DRUGS (2)
  1. CLINIMIX [Suspect]
     Active Substance: ALANINE\ARGININE\DEXTROSE\GLYCINE\HISTIDINE\ISOLEUCINE\LEUCINE\LYSINE\METHIONINE\PHENYLALANINE\PROLI
     Indication: Parenteral nutrition
     Route: 065
  2. CLINOLIPID [Suspect]
     Active Substance: OLIVE OIL\SOYBEAN OIL
     Indication: Parenteral nutrition
     Route: 065

REACTIONS (1)
  - Blood alkaline phosphatase increased [Unknown]
